FAERS Safety Report 8997472 (Version 1)
Quarter: 2013Q1

REPORT INFORMATION
  Report Type: Spontaneous
  Country: US (occurrence: US)
  Receive Date: 20130104
  Receipt Date: 20130104
  Transmission Date: 20140127
  Serious: Yes (Other)
  Sender: FDA-Public Use
  Company Number: US-009507513-00110218

PATIENT
  Age: 9 Year
  Sex: Male

DRUGS (4)
  1. SINGULAIR [Suspect]
     Dosage: 1 TAB MG, QD
     Route: 048
  2. CLARITIN [Concomitant]
  3. COMBIVENT [Concomitant]
  4. NASOCORT [Concomitant]

REACTIONS (4)
  - Chest discomfort [Recovering/Resolving]
  - Nervousness [Recovering/Resolving]
  - Panic attack [Recovering/Resolving]
  - Tremor [Recovering/Resolving]
